FAERS Safety Report 21846963 (Version 2)
Quarter: 2023Q1

REPORT INFORMATION
  Report Type: Report from Study
  Country: US (occurrence: US)
  Receive Date: 20230111
  Receipt Date: 20230125
  Transmission Date: 20230418
  Serious: Yes (Other)
  Sender: FDA-Public Use
  Company Number: US-AMGEN-USASP2023003190

PATIENT
  Age: 71 Year
  Sex: Female

DRUGS (1)
  1. ENBREL [Suspect]
     Active Substance: ETANERCEPT
     Indication: Product used for unknown indication
     Dosage: UNK, QWK
     Route: 065

REACTIONS (4)
  - Ill-defined disorder [Unknown]
  - Product administration interrupted [Unknown]
  - Product packaging issue [Unknown]
  - Pain [Unknown]

NARRATIVE: CASE EVENT DATE: 20230117
